FAERS Safety Report 20881457 (Version 2)
Quarter: 2023Q2

REPORT INFORMATION
  Report Type: Spontaneous
  Country: US (occurrence: US)
  Receive Date: 20220526
  Receipt Date: 20230516
  Transmission Date: 20230722
  Serious: No
  Sender: FDA-Public Use
  Company Number: US-RADIUS HEALTH INC.-2022US001484

PATIENT
  Age: 56 Year
  Sex: Female
  Weight: 58.095 kg

DRUGS (6)
  1. TYMLOS [Suspect]
     Active Substance: ABALOPARATIDE
     Indication: Senile osteoporosis
     Dosage: 80 MCG, QD
     Route: 058
     Dates: start: 20220323, end: 202204
  2. TYMLOS [Suspect]
     Active Substance: ABALOPARATIDE
     Indication: Illness
  3. VITAMINS [Concomitant]
     Active Substance: VITAMINS
     Indication: Product used for unknown indication
  4. VITAMIN D3 [Concomitant]
     Active Substance: CHOLECALCIFEROL
     Indication: Product used for unknown indication
  5. CALCIUM [Concomitant]
     Active Substance: CALCIUM
     Indication: Product used for unknown indication
  6. ATORVASTATIN CALCIUM [Concomitant]
     Active Substance: ATORVASTATIN CALCIUM
     Indication: Product used for unknown indication

REACTIONS (6)
  - Feeling cold [Recovered/Resolved]
  - Headache [Recovered/Resolved]
  - Abdominal pain upper [Recovered/Resolved]
  - Nausea [Recovered/Resolved]
  - Vomiting [Recovered/Resolved]
  - Asthenia [Recovered/Resolved]

NARRATIVE: CASE EVENT DATE: 20220301
